FAERS Safety Report 12519215 (Version 1)
Quarter: 2016Q2

REPORT INFORMATION
  Report Type: Report from Study
  Country: US (occurrence: US)
  Receive Date: 20160630
  Receipt Date: 20160630
  Transmission Date: 20160815
  Serious: Yes (Hospitalization)
  Sender: FDA-Public Use
  Company Number: US-ACTELION-A-NJ2016-138273

PATIENT
  Age: 41 Year
  Sex: Female

DRUGS (10)
  1. TREPROSTINIL DIOLAMIN [Concomitant]
     Active Substance: TREPROSTINIL DIOLAMINE
  2. ZOLOFT [Concomitant]
     Active Substance: SERTRALINE HYDROCHLORIDE
  3. ALDACTONE [Concomitant]
     Active Substance: SPIRONOLACTONE
  4. PROTONIX [Concomitant]
     Active Substance: PANTOPRAZOLE SODIUM
  5. TRACLEER [Suspect]
     Active Substance: BOSENTAN
     Indication: PULMONARY HYPERTENSION
     Dosage: 125 MG, BID
     Route: 048
     Dates: start: 20150912
  6. SILDENAFIL. [Concomitant]
     Active Substance: SILDENAFIL
  7. NEURONTIN [Concomitant]
     Active Substance: GABAPENTIN
  8. TOPAMAX [Concomitant]
     Active Substance: TOPIRAMATE
  9. ALLOPURINOL. [Concomitant]
     Active Substance: ALLOPURINOL
  10. DOXEPIN [Concomitant]
     Active Substance: DOXEPIN

REACTIONS (1)
  - Viral infection [Unknown]

NARRATIVE: CASE EVENT DATE: 201606
